FAERS Safety Report 12881036 (Version 1)
Quarter: 2016Q4

REPORT INFORMATION
  Report Type: Spontaneous
  Country: US (occurrence: US)
  Receive Date: 20161025
  Receipt Date: 20161025
  Transmission Date: 20170207
  Serious: Yes (Life-Threatening, Hospitalization, Disabling)
  Sender: FDA-Public Use
  Company Number: None

PATIENT
  Age: 39 Year
  Sex: Male
  Weight: 76.5 kg

DRUGS (5)
  1. CIPROFLOXACIN. [Suspect]
     Active Substance: CIPROFLOXACIN
     Indication: DYSURIA
     Dosage: ?          QUANTITY:20 TABLET(S);??EVERY 12 HOURS
     Route: 048
     Dates: start: 20160205, end: 20161010
  2. BIOTIN [Concomitant]
     Active Substance: BIOTIN
  3. AIRBORNE CHEWABLES [Concomitant]
  4. VITAMIN D [Concomitant]
     Active Substance: CHOLECALCIFEROL
  5. FISH OIL [Concomitant]
     Active Substance: FISH OIL

REACTIONS (8)
  - Muscle spasms [None]
  - Paraesthesia [None]
  - Tremor [None]
  - Myalgia [None]
  - Peripheral sensory neuropathy [None]
  - Hyperhidrosis [None]
  - Tendon pain [None]
  - Blepharospasm [None]

NARRATIVE: CASE EVENT DATE: 20160205
